FAERS Safety Report 6755619-X (Version None)
Quarter: 2010Q2

REPORT INFORMATION
  Report Type: 
  Country: None (occurrence: None)
  Receive Date: 20100604
  Receipt Date: 20100527
  Transmission Date: 20101027
  Serious: Yes (Hospitalization)
  Sender: FDA-Public Use
  Company Number: PHHO2010NL08291

PATIENT
  Sex: Male
  Weight: 85 kg

DRUGS (3)
  1. STI571/CGP57148B T35717+CAPS [Suspect]
     Indication: GASTROINTESTINAL STROMAL TUMOUR
     Dosage: 300 MG, UNK
     Route: 048
  2. PREDNISONE [Concomitant]
  3. NEXIUM [Concomitant]

REACTIONS (9)
  - ABDOMINAL PAIN [None]
  - ABSCESS [None]
  - ABSCESS DRAINAGE [None]
  - ATELECTASIS [None]
  - CENTRAL VENOUS CATHETERISATION [None]
  - FLUID RETENTION [None]
  - PLEURAL EFFUSION [None]
  - PNEUMONIA [None]
  - STAPHYLOCOCCAL INFECTION [None]
